FAERS Safety Report 9775183 (Version 3)
Quarter: 2014Q2

REPORT INFORMATION
  Report Type: Spontaneous
  Country: US (occurrence: US)
  Receive Date: 20131220
  Receipt Date: 20140422
  Transmission Date: 20141212
  Serious: Yes (Hospitalization)
  Sender: FDA-Public Use
  Company Number: US-BAYER-2013-154382

PATIENT
  Age: 26 Year
  Sex: Female
  Weight: 91.16 kg

DRUGS (5)
  1. MIRENA [Suspect]
     Indication: CONTRACEPTION
     Dosage: 20 MCG/24HR, CONT
     Route: 015
     Dates: start: 20090429, end: 20130606
  2. DOXYCYCLINE [Concomitant]
     Indication: PELVIC INFLAMMATORY DISEASE
  3. FLAGYL [Concomitant]
  4. ULTRAM [Concomitant]
  5. HYDROCODONE/ACETAMINOPHEN [Concomitant]

REACTIONS (7)
  - Uterine perforation [None]
  - Ovarian cyst [Recovered/Resolved]
  - Injury [None]
  - Medical device discomfort [None]
  - Medical device pain [None]
  - Device issue [None]
  - Depression [None]
